FAERS Safety Report 15251086 (Version 1)
Quarter: 2018Q3

REPORT INFORMATION
  Report Type: Spontaneous
  Country: DE (occurrence: DE)
  Receive Date: 20180807
  Receipt Date: 20180807
  Transmission Date: 20181010
  Serious: Yes (Hospitalization, Other)
  Sender: FDA-Public Use
  Company Number: DE-OXFORD PHARMACEUTICALS, LLC-2018OXF00079

PATIENT
  Age: 47 Year
  Sex: Female

DRUGS (1)
  1. BACLOFEN. [Suspect]
     Active Substance: BACLOFEN
     Indication: ALCOHOLISM
     Dosage: 200 MG, 1X/DAY (UP TO 8?25 MG TABLETS)
     Route: 065

REACTIONS (7)
  - Delirium [Recovering/Resolving]
  - Pulmonary oedema [Recovering/Resolving]
  - Multiple organ dysfunction syndrome [Recovering/Resolving]
  - Product use in unapproved indication [Not Recovered/Not Resolved]
  - Stress cardiomyopathy [Recovering/Resolving]
  - Anuria [Recovered/Resolved]
  - Prescribed overdose [Not Recovered/Not Resolved]
